FAERS Safety Report 6091350-4 (Version None)
Quarter: 2009Q1

REPORT INFORMATION
  Report Type: 
  Country: None (occurrence: None)
  Receive Date: 20090220
  Receipt Date: 20090220
  Transmission Date: 20090719
  Serious: No
  Sender: FDA-Public Use
  Company Number: None

PATIENT
  Age: 56 Year
  Sex: Female
  Weight: 83.9154 kg

DRUGS (1)
  1. LEVAQUIN [Suspect]
     Indication: DEBRIDEMENT
     Dosage: LEVOQUIN 750 MG 1X/DAY PO
     Route: 048
     Dates: start: 20090113, end: 20090120

REACTIONS (2)
  - ABASIA [None]
  - MENISCUS LESION [None]
